FAERS Safety Report 8284794-3 (Version None)
Quarter: 2012Q2

REPORT INFORMATION
  Report Type: 
  Country: None (occurrence: None)
  Receive Date: 20120413
  Receipt Date: 20120228
  Transmission Date: 20120825
  Serious: No
  Sender: FDA-Public Use
  Company Number: US-ASTRAZENECA-2012SE00832

PATIENT
  Age: 58 Year
  Sex: Female
  Weight: 54.4 kg

DRUGS (15)
  1. SEROQUEL [Suspect]
     Indication: ANXIETY
     Route: 048
  2. LISINOPRIL [Concomitant]
     Indication: HYPERTENSION
  3. ASPIRIN [Concomitant]
     Indication: CARDIAC DISORDER
  4. TOPROL-XL [Suspect]
     Indication: BLOOD PRESSURE ABNORMAL
     Route: 048
  5. TOPROL-XL [Suspect]
     Indication: CORONARY ARTERY DISEASE
     Route: 048
  6. PLAVIX [Concomitant]
     Indication: CARDIAC DISORDER
  7. REGLAN [Concomitant]
     Indication: ULCER
  8. ZOLOFT [Concomitant]
     Indication: ANXIETY
  9. TOPROL-XL [Suspect]
     Indication: HYPERTENSION
     Route: 048
  10. LIPITOR [Concomitant]
     Indication: HYPERTENSION
  11. IMDUR [Concomitant]
     Indication: CARDIAC DISORDER
  12. NEXIUM [Suspect]
     Indication: GASTROOESOPHAGEAL REFLUX DISEASE
     Route: 048
  13. TRAXAM [Concomitant]
     Indication: ANXIETY
  14. RANITIDINE HCL [Concomitant]
     Indication: ULCER
  15. MV AND CALCIUM [Concomitant]
     Indication: MEDICAL DIET

REACTIONS (4)
  - ANXIETY [None]
  - MALAISE [None]
  - OFF LABEL USE [None]
  - ASTHENIA [None]
